FAERS Safety Report 23772701 (Version 1)
Quarter: 2024Q2

REPORT INFORMATION
  Report Type: Spontaneous
  Country: US (occurrence: None)
  Receive Date: 20240422
  Receipt Date: 20240422
  Transmission Date: 20240716
  Serious: No
  Sender: FDA-Public Use
  Company Number: None

PATIENT
  Age: 36 Year
  Sex: Male
  Weight: 95.5 kg

DRUGS (4)
  1. NIROGACESTAT [Suspect]
     Active Substance: NIROGACESTAT
     Indication: Desmoid tumour
     Dosage: FREQUENCY : TWICE A DAY;?
     Route: 048
     Dates: start: 20240117, end: 20240422
  2. Adderall 15 mg tablet [Concomitant]
     Dates: start: 20231108
  3. Gabepentin 300 mg capsule [Concomitant]
     Dates: start: 20230502
  4. Tramadol 50 mg tablet [Concomitant]
     Dates: start: 20230406

REACTIONS (4)
  - Visual field defect [None]
  - Visual impairment [None]
  - Impaired driving ability [None]
  - Ocular discomfort [None]

NARRATIVE: CASE EVENT DATE: 20240417
